FAERS Safety Report 5893137-1 (Version None)
Quarter: 2008Q3

REPORT INFORMATION
  Report Type: 
  Country: None (occurrence: None)
  Receive Date: 20080923
  Receipt Date: 20070821
  Transmission Date: 20090109
  Serious: No
  Sender: FDA-Public Use
  Company Number: US-ASTRAZENECA-2007UW20059

PATIENT
  Age: 55 Year
  Sex: Male
  Weight: 102.1 kg

DRUGS (5)
  1. SEROQUEL [Suspect]
     Indication: BIPOLAR I DISORDER
     Dates: start: 20070817
  2. SEROQUEL [Suspect]
  3. XANAX [Concomitant]
  4. OXYCODONE HCL [Concomitant]
  5. NORCO [Concomitant]

REACTIONS (4)
  - AGGRESSION [None]
  - FEELING ABNORMAL [None]
  - LETHARGY [None]
  - TACHYCARDIA [None]
